FAERS Safety Report 13397815 (Version 1)
Quarter: 2017Q2

REPORT INFORMATION
  Report Type: Spontaneous
  Country: US (occurrence: US)
  Receive Date: 20170403
  Receipt Date: 20170403
  Transmission Date: 20170830
  Serious: Yes (Hospitalization, Other)
  Sender: FDA-Public Use
  Company Number: US-SHIRE-US201706557

PATIENT
  Age: 16 Year
  Sex: Female

DRUGS (4)
  1. 433 (CARBAMAZEPINE) [Suspect]
     Active Substance: CARBAMAZEPINE
     Indication: INTENTIONAL OVERDOSE
     Dosage: UNK UNK, ONE DOSE (APPROXIMATELY TWENTY 200 MG PILLS)
     Route: 048
  2. SODIUM BICARBONATE. [Suspect]
     Active Substance: SODIUM BICARBONATE
     Indication: INTENTIONAL OVERDOSE
     Dosage: UNK, UNKNOWN
     Route: 042
  3. CHARCOAL ACTIVATED [Suspect]
     Active Substance: ACTIVATED CHARCOAL
     Indication: INTENTIONAL OVERDOSE
     Dosage: UNK, OTHER (MYLTIPLE DOSES)
     Route: 065
  4. SODIUM BICARBONATE. [Suspect]
     Active Substance: SODIUM BICARBONATE
     Indication: METABOLIC ACIDOSIS

REACTIONS (11)
  - Unresponsive to stimuli [Recovered/Resolved]
  - Urine osmolarity increased [Recovered/Resolved]
  - Drug diversion [Recovered/Resolved]
  - Dystonia [Recovered/Resolved]
  - Metabolic acidosis [Recovered/Resolved]
  - Blood osmolarity increased [Recovered/Resolved]
  - Specific gravity urine abnormal [Recovered/Resolved]
  - Polyuria [Recovered/Resolved]
  - Hypernatraemia [Recovered/Resolved]
  - Intentional overdose [Recovered/Resolved]
  - Depressed level of consciousness [Recovered/Resolved]
